FAERS Safety Report 19295523 (Version 2)
Quarter: 2021Q2

REPORT INFORMATION
  Report Type: Report from Study
  Country: GB (occurrence: GB)
  Receive Date: 20210524
  Receipt Date: 20210527
  Transmission Date: 20210717
  Serious: Yes (Hospitalization)
  Sender: FDA-Public Use
  Company Number: GB-GLAXOSMITHKLINE-GB2021GSK105411

PATIENT
  Age: 77 Year
  Sex: Male

DRUGS (5)
  1. BELANTAMAB MAFODOTIN. [Suspect]
     Active Substance: BELANTAMAB MAFODOTIN
     Indication: PLASMA CELL MYELOMA RECURRENT
     Dosage: 2.5 MG/KG, ON DAY 1 OF EVERY21 DAY CYCLE CYC
     Route: 042
  2. SENNA TABS [Concomitant]
     Active Substance: SENNOSIDES A AND B
     Indication: CONSTIPATION
     Dosage: 15 MG,PRN
     Route: 048
     Dates: start: 20201221, end: 20210208
  3. HYLO NIGHT EYE OINTMENT [Concomitant]
     Indication: READING DISORDER
     Dosage: UNK
     Route: 047
     Dates: start: 20210209
  4. OXFORD ASTRAZENECA COVID 19 VACCINE [Concomitant]
     Indication: COVID-19 PROPHYLAXIS
     Dosage: 0.5 ML, SINGLE
     Route: 030
     Dates: start: 20210119
  5. CARMELLOSE EYE DROPS [Concomitant]
     Indication: DRY EYE
     Dosage: 1 DROP %Q4D
     Dates: start: 20201208

REACTIONS (1)
  - Cellulitis [Recovered/Resolved]

NARRATIVE: CASE EVENT DATE: 20210517
